FAERS Safety Report 18579395 (Version 1)
Quarter: 2020Q4

REPORT INFORMATION
  Report Type: Spontaneous
  Country: NL (occurrence: DE)
  Receive Date: 20201204
  Receipt Date: 20201204
  Transmission Date: 20210114
  Serious: Yes (Death)
  Sender: FDA-Public Use
  Company Number: DE-FRESENIUS KABI-FK202012701

PATIENT
  Age: 63 Year
  Sex: Female

DRUGS (8)
  1. BEVACIZUMAB. [Suspect]
     Active Substance: BEVACIZUMAB
     Dosage: WITH EXEMESTAN
     Route: 065
     Dates: start: 2014, end: 2015
  2. GEMCITABINE HYDROCHLORIDE. [Concomitant]
     Active Substance: GEMCITABINE HYDROCHLORIDE
     Indication: PRODUCT USED FOR UNKNOWN INDICATION
     Route: 065
  3. CAPECITABINE. [Suspect]
     Active Substance: CAPECITABINE
     Indication: BREAST CANCER METASTATIC
     Dosage: FOR FOUR MONTHS
     Route: 048
  4. BEVACIZUMAB. [Suspect]
     Active Substance: BEVACIZUMAB
     Indication: BREAST CANCER METASTATIC
     Dosage: WITH PACLITAXEL, FOR 12 WEEKS
     Route: 065
     Dates: start: 2014, end: 2014
  5. EXEMESTANE. [Suspect]
     Active Substance: EXEMESTANE
     Indication: BREAST CANCER METASTATIC
     Dosage: WITH BEVACIZUMAB
     Route: 065
     Dates: start: 2014, end: 2015
  6. TALAZOPARIB TOSYLATE [Concomitant]
     Active Substance: TALAZOPARIB TOSYLATE
     Indication: PRODUCT USED FOR UNKNOWN INDICATION
     Route: 065
     Dates: start: 2017
  7. PACLITAXEL (MANUFACTURER UNKNOWN) [Suspect]
     Active Substance: PACLITAXEL
     Indication: BREAST CANCER METASTATIC
     Dosage: WITH BEVACIZUMAB, FOR 12 WEEKS
     Route: 065
     Dates: start: 2014, end: 2014
  8. CARBOPLATIN. [Concomitant]
     Active Substance: CARBOPLATIN
     Indication: PRODUCT USED FOR UNKNOWN INDICATION
     Route: 065

REACTIONS (2)
  - Anaemia [Recovered/Resolved]
  - Death [Fatal]

NARRATIVE: CASE EVENT DATE: 2017
